FAERS Safety Report 6068823-3 (Version None)
Quarter: 2009Q1

REPORT INFORMATION
  Report Type: 
  Country: None (occurrence: None)
  Receive Date: 20090206
  Receipt Date: 20090203
  Transmission Date: 20090719
  Serious: Yes (Hospitalization)
  Sender: FDA-Public Use
  Company Number: DE-JNJFOC-20090104672

PATIENT

DRUGS (1)
  1. IBUPROFEN TABLETS [Suspect]
     Indication: PATENT DUCTUS ARTERIOSUS
     Dosage: 10-5-5 MG/KG AT 24 HOUR INTERVALS

REACTIONS (2)
  - HYPERBILIRUBINAEMIA [None]
  - NEURODEVELOPMENTAL DISORDER [None]
